FAERS Safety Report 7496304-9 (Version None)
Quarter: 2011Q2

REPORT INFORMATION
  Report Type: 
  Country: None (occurrence: None)
  Receive Date: 20110523
  Receipt Date: 20110523
  Transmission Date: 20111010
  Serious: Yes (Hospitalization)
  Sender: FDA-Public Use
  Company Number: BE-PFIZER INC-2011109870

PATIENT
  Age: 67 Year
  Sex: Male
  Weight: 60 kg

DRUGS (6)
  1. LEDERTREXATE [Concomitant]
     Dosage: UNK
     Route: 048
     Dates: start: 20001014
  2. ENBREL [Concomitant]
     Dosage: UNK
     Dates: start: 20030301, end: 20030901
  3. ARAVA [Concomitant]
     Dosage: UNK
     Route: 048
     Dates: start: 20041110
  4. CELEBREX [Suspect]
     Indication: ARTHRITIS
     Dosage: 200 MG, ALTERNATE DAY
     Route: 048
     Dates: start: 20021014
  5. MESULID [Concomitant]
     Dosage: UNK
     Route: 048
     Dates: start: 20060301, end: 20060901
  6. MEDROL [Concomitant]
     Dosage: 4 MG, 1X/DAY
     Route: 048
     Dates: start: 20041010

REACTIONS (1)
  - LOOSE TOOTH [None]
